FAERS Safety Report 11825776 (Version 1)
Quarter: 2015Q4

REPORT INFORMATION
  Report Type: Spontaneous
  Country: US (occurrence: None)
  Receive Date: 20151210
  Receipt Date: 20151210
  Transmission Date: 20160305
  Serious: No
  Sender: FDA-Public Use
  Company Number: None

PATIENT
  Age: 37 Year
  Sex: Female
  Weight: 125.65 kg

DRUGS (16)
  1. SOLU-MEDROL [Suspect]
     Active Substance: METHYLPREDNISOLONE SODIUM SUCCINATE
     Dosage: 80 MG / 2 VIALS  Q12H INTRAVENOUS
     Route: 042
     Dates: start: 20151123, end: 20151123
  2. ZITHROMAX [Concomitant]
     Active Substance: AZITHROMYCIN DIHYDRATE
  3. BENADRYL [Concomitant]
     Active Substance: DIPHENHYDRAMINE HYDROCHLORIDE
  4. METFORMIN [Concomitant]
     Active Substance: METFORMIN HYDROCHLORIDE
  5. PULMICORT TURBUHALER [Concomitant]
     Active Substance: BUDESONIDE
  6. DUONEB [Concomitant]
     Active Substance: ALBUTEROL SULFATE\IPRATROPIUM BROMIDE
  7. COLACE [Concomitant]
     Active Substance: DOCUSATE SODIUM
  8. TRILEPTAL [Concomitant]
     Active Substance: OXCARBAZEPINE
  9. REMERON [Concomitant]
     Active Substance: MIRTAZAPINE
  10. NICOTIN PATCH [Concomitant]
  11. SOMA [Concomitant]
     Active Substance: CARISOPRODOL
  12. ABILIFY [Concomitant]
     Active Substance: ARIPIPRAZOLE
  13. ROCEPHIN [Concomitant]
     Active Substance: CEFTRIAXONE SODIUM
  14. PROMETHAZINE/COD SYRUP [Concomitant]
  15. LISINOPRIL. [Concomitant]
     Active Substance: LISINOPRIL
  16. NORCO [Concomitant]
     Active Substance: ACETAMINOPHEN\HYDROCODONE BITARTRATE

REACTIONS (1)
  - Pruritus generalised [None]

NARRATIVE: CASE EVENT DATE: 20151123
